FAERS Safety Report 18922844 (Version 1)
Quarter: 2021Q1

REPORT INFORMATION
  Report Type: Spontaneous
  Country: ES (occurrence: ES)
  Receive Date: 20210222
  Receipt Date: 20210222
  Transmission Date: 20210420
  Serious: Yes (Hospitalization)
  Sender: FDA-Public Use
  Company Number: ES-LUPIN PHARMACEUTICALS INC.-2021-02001

PATIENT
  Age: 29 Year
  Sex: Female

DRUGS (47)
  1. HYDROCORTISONE. [Suspect]
     Active Substance: HYDROCORTISONE
     Dosage: 100 MILLIGRAM
     Route: 065
     Dates: start: 20160812
  2. METHOTREXATE. [Suspect]
     Active Substance: METHOTREXATE
     Dosage: 36 MILLIGRAM
     Route: 037
     Dates: start: 20160705
  3. METHOTREXATE. [Suspect]
     Active Substance: METHOTREXATE
     Dosage: 12 MILLIGRAM
     Route: 037
     Dates: start: 20160104
  4. METHOTREXATE. [Suspect]
     Active Substance: METHOTREXATE
     Dosage: 12 MILLIGRAM
     Route: 037
     Dates: start: 20171122
  5. CYTARABINE. [Suspect]
     Active Substance: CYTARABINE
     Indication: T-CELL TYPE ACUTE LEUKAEMIA
     Dosage: 60 MILLIGRAM
     Route: 037
     Dates: start: 20151124
  6. CYTARABINE. [Suspect]
     Active Substance: CYTARABINE
     Dosage: 2G/M2; DAYS 1 TO 5
     Route: 037
     Dates: start: 20171219
  7. CYTARABINE. [Suspect]
     Active Substance: CYTARABINE
     Dosage: 30 MILLIGRAM
     Route: 037
     Dates: start: 20171122
  8. DEXAMETHASONE. [Concomitant]
     Active Substance: DEXAMETHASONE
     Dosage: 475 MILLIGRAM
     Route: 065
     Dates: start: 20160705
  9. VINCRISTINE [Suspect]
     Active Substance: VINCRISTINE
     Dosage: 8 MILLIGRAM
     Route: 065
     Dates: start: 20170705
  10. VINCRISTINE [Suspect]
     Active Substance: VINCRISTINE
     Dosage: 18 MILLIGRAM
     Route: 065
     Dates: start: 20170812
  11. METHOTREXATE. [Suspect]
     Active Substance: METHOTREXATE
     Dosage: 930 MILLIGRAM
     Route: 030
     Dates: start: 20170427, end: 20171106
  12. ASPARAGINASE [Suspect]
     Active Substance: ASPARAGINASE
     Indication: T-CELL TYPE ACUTE LEUKAEMIA
     Dosage: 149 MILLIGRAM
     Route: 065
     Dates: start: 20151124
  13. DEXAMETHASONE. [Concomitant]
     Active Substance: DEXAMETHASONE
     Dosage: 4160 MILLIGRAM
     Route: 065
     Dates: start: 20160812
  14. IDARUBICIN [Concomitant]
     Active Substance: IDARUBICIN
     Indication: T-CELL TYPE ACUTE LEUKAEMIA
     Dosage: 53 MILLIGRAM
     Route: 065
     Dates: start: 20160104
  15. NELARABINE [Suspect]
     Active Substance: NELARABINE
     Dosage: PROPHYLACTIC DOSE
     Route: 037
  16. VINCRISTINE [Suspect]
     Active Substance: VINCRISTINE
     Dosage: 8 MILLIGRAM
     Route: 048
     Dates: start: 20160402
  17. ASPARAGINASE [Suspect]
     Active Substance: ASPARAGINASE
     Dosage: 91.4 MILLIGRAM
     Route: 065
     Dates: start: 20160402
  18. CYTARABINE. [Suspect]
     Active Substance: CYTARABINE
     Dosage: 150 MILLIGRAM
     Route: 037
     Dates: start: 20160812
  19. CYTARABINE. [Suspect]
     Active Substance: CYTARABINE
     Dosage: UNK
  20. MERCAPTOPURINE. [Concomitant]
     Active Substance: MERCAPTOPURINE
     Dosage: 18.4 MILLIGRAM
     Route: 048
     Dates: start: 20170427, end: 20171106
  21. HYDROCORTISONE. [Suspect]
     Active Substance: HYDROCORTISONE
     Dosage: 20 MILLIGRAM
     Route: 065
     Dates: start: 20160104
  22. NELARABINE [Suspect]
     Active Substance: NELARABINE
     Indication: T-CELL TYPE ACUTE LEUKAEMIA
     Dosage: (1500 MG/M2 IV ON DAYS +1, +3, AND +5 EVERY 21 DAYS)
     Route: 042
  23. VINCRISTINE [Suspect]
     Active Substance: VINCRISTINE
     Indication: T-CELL TYPE ACUTE LEUKAEMIA
     Dosage: 8 MILLIGRAM
     Route: 065
     Dates: start: 20151124
  24. CLOFARABINE. [Concomitant]
     Active Substance: CLOFARABINE
     Indication: T-CELL TYPE ACUTE LEUKAEMIA
     Dosage: 40 MILLIGRAM/SQ. METER, DAY 1?5
     Route: 065
     Dates: start: 20171219
  25. DAUNORUBICIN [Suspect]
     Active Substance: DAUNORUBICIN
     Indication: T-CELL TYPE ACUTE LEUKAEMIA
     Dosage: 268 MILLIGRAM
     Route: 065
     Dates: start: 20151124
  26. CYTARABINE. [Suspect]
     Active Substance: CYTARABINE
     Dosage: 13.12 MILLIGRAM
     Route: 065
     Dates: start: 20160705
  27. CYTARABINE. [Suspect]
     Active Substance: CYTARABINE
     Dosage: 90 MILLIGRAM
     Route: 037
     Dates: start: 20160402
  28. CYTARABINE. [Suspect]
     Active Substance: CYTARABINE
     Dosage: 90 MILLIGRAM
     Route: 037
     Dates: start: 20160705
  29. HYDROCORTISONE. [Suspect]
     Active Substance: HYDROCORTISONE
     Indication: T-CELL TYPE ACUTE LEUKAEMIA
     Dosage: 40 MILLIGRAM
     Route: 065
     Dates: start: 20151124
  30. HYDROCORTISONE. [Suspect]
     Active Substance: HYDROCORTISONE
     Dosage: 60 MILLIGRAM
     Route: 065
     Dates: start: 20160705
  31. METHOTREXATE. [Suspect]
     Active Substance: METHOTREXATE
     Dosage: 15.5 MILLIGRAM
     Route: 065
     Dates: start: 20160402
  32. METHOTREXATE. [Suspect]
     Active Substance: METHOTREXATE
     Dosage: 780 MILLIGRAM
     Route: 030
     Dates: start: 20160812
  33. METHOTREXATE. [Suspect]
     Active Substance: METHOTREXATE
     Dosage: 16.25 MILLIGRAM
     Route: 065
     Dates: start: 20160805
  34. METHOTREXATE. [Suspect]
     Active Substance: METHOTREXATE
     Dosage: 36 MILLIGRAM
     Route: 037
     Dates: start: 20160402
  35. PREDNISONE. [Suspect]
     Active Substance: PREDNISONE
     Indication: T-CELL TYPE ACUTE LEUKAEMIA
     Dosage: 1700 MILLIGRAM
     Route: 065
     Dates: start: 20151124
  36. ASPARAGINASE [Suspect]
     Active Substance: ASPARAGINASE
     Dosage: 97.8 MILLIGRAM
     Route: 065
     Dates: start: 20160105
  37. CYTARABINE. [Suspect]
     Active Substance: CYTARABINE
     Dosage: 15 MILLIGRAM
     Route: 065
     Dates: start: 20160104
  38. CYTARABINE. [Suspect]
     Active Substance: CYTARABINE
     Dosage: 150 MILLIGRAM
     Route: 037
     Dates: start: 20160812
  39. CYTARABINE. [Suspect]
     Active Substance: CYTARABINE
     Dosage: 30 MILLIGRAM
     Route: 037
     Dates: start: 20160104
  40. DEXAMETHASONE. [Concomitant]
     Active Substance: DEXAMETHASONE
     Indication: T-CELL TYPE ACUTE LEUKAEMIA
     Dosage: 500 MILLIGRAM
     Route: 065
     Dates: start: 20160402
  41. HYDROCORTISONE. [Suspect]
     Active Substance: HYDROCORTISONE
     Dosage: 60 MILLIGRAM
     Route: 065
     Dates: start: 20160402
  42. METHOTREXATE. [Suspect]
     Active Substance: METHOTREXATE
     Dosage: 60 MILLIGRAM
     Route: 037
     Dates: start: 20160812
  43. METHOTREXATE. [Suspect]
     Active Substance: METHOTREXATE
     Dosage: UNK
  44. MERCAPTOPURINE. [Concomitant]
     Active Substance: MERCAPTOPURINE
     Indication: T-CELL TYPE ACUTE LEUKAEMIA
     Dosage: 12.9 MILLIGRAM
     Route: 048
     Dates: start: 20160812
  45. METHOTREXATE. [Suspect]
     Active Substance: METHOTREXATE
     Indication: T-CELL TYPE ACUTE LEUKAEMIA
     Dosage: 24 MILLIGRAM
     Route: 037
     Dates: start: 20151124
  46. CYTARABINE. [Suspect]
     Active Substance: CYTARABINE
     Dosage: 12 MILLIGRAM
     Route: 065
     Dates: start: 20160402
  47. FLUDARABINE [Concomitant]
     Active Substance: FLUDARABINE PHOSPHATE
     Indication: T-CELL TYPE ACUTE LEUKAEMIA
     Dosage: 223 MILLIGRAM
     Route: 065
     Dates: start: 20160104

REACTIONS (1)
  - Drug ineffective [Unknown]
